FAERS Safety Report 9412460 (Version 3)
Quarter: 2014Q1

REPORT INFORMATION
  Report Type: Spontaneous
  Country: US (occurrence: US)
  Receive Date: 20130722
  Receipt Date: 20140131
  Transmission Date: 20141002
  Serious: Yes (Hospitalization, Other)
  Sender: FDA-Public Use
  Company Number: US-PFIZER INC-2013212189

PATIENT
  Age: 50 Year
  Sex: Female
  Weight: 43.1 kg

DRUGS (3)
  1. CHANTIX [Suspect]
     Indication: SMOKING CESSATION THERAPY
     Dosage: UNK
     Dates: start: 2006, end: 2006
  2. CHANTIX [Suspect]
     Dosage: 0.5 MG, DAILY
     Dates: start: 20130713, end: 2013
  3. CHANTIX [Suspect]
     Dosage: UNK
     Dates: start: 201312

REACTIONS (5)
  - Cardiac disorder [Unknown]
  - Myocardial infarction [Recovered/Resolved]
  - Angina unstable [Unknown]
  - Stress [Recovered/Resolved]
  - Incorrect dose administered [Unknown]
